FAERS Safety Report 14346139 (Version 2)
Quarter: 2018Q1

REPORT INFORMATION
  Report Type: Report from Study
  Country: CN (occurrence: CN)
  Receive Date: 20180103
  Receipt Date: 20180215
  Transmission Date: 20180509
  Serious: Yes (Death, Hospitalization, Other)
  Sender: FDA-Public Use
  Company Number: CN-BAYER-2017-165636

PATIENT
  Age: 38 Year
  Sex: Male

DRUGS (3)
  1. STIVARGA [Suspect]
     Active Substance: REGORAFENIB
     Indication: COLON CANCER
     Dosage: 120 MG, QD
     Route: 048
     Dates: start: 20170724, end: 2017
  2. STIVARGA [Suspect]
     Active Substance: REGORAFENIB
     Indication: COLON CANCER
     Dosage: 80 MG, QD
     Route: 048
     Dates: start: 2017, end: 2017
  3. STIVARGA [Suspect]
     Active Substance: REGORAFENIB
     Indication: COLON CANCER
     Dosage: 120 MG, QD
     Route: 048
     Dates: start: 2017, end: 20171220

REACTIONS (18)
  - Unevaluable event [None]
  - Alopecia [None]
  - Rash [None]
  - Fatigue [Recovering/Resolving]
  - Vomiting [Recovering/Resolving]
  - Vomiting [None]
  - Anal haemorrhage [None]
  - Decreased appetite [None]
  - Death [Fatal]
  - Fatigue [None]
  - White blood cell count decreased [None]
  - Rash [Recovering/Resolving]
  - Vomiting [None]
  - Renal impairment [Not Recovered/Not Resolved]
  - Oropharyngeal pain [None]
  - Decreased appetite [Recovering/Resolving]
  - Nausea [Not Recovered/Not Resolved]
  - Decreased appetite [None]

NARRATIVE: CASE EVENT DATE: 2017
